FAERS Safety Report 9652951 (Version 4)
Quarter: 2015Q2

REPORT INFORMATION
  Report Type: Report from Study
  Country: BE (occurrence: BE)
  Receive Date: 20131029
  Receipt Date: 20150626
  Transmission Date: 20150821
  Serious: Yes (Hospitalization)
  Sender: FDA-Public Use
  Company Number: BE-UCBSA-101484

PATIENT
  Age: 74 Year
  Sex: Male
  Weight: 77 kg

DRUGS (6)
  1. AMOXYCLAV [Concomitant]
     Indication: ERYSIPELAS
     Dosage: 875 MG, 3X/DAY (TID)
     Route: 048
     Dates: start: 20131019, end: 20131020
  2. AMOXICILLINE [Concomitant]
     Active Substance: AMOXICILLIN
     Indication: ERYSIPELAS
     Dosage: 875 MG, 2X/DAY (BID)
     Route: 048
     Dates: start: 20131018, end: 20131019
  3. FOLIC ACID. [Concomitant]
     Active Substance: FOLIC ACID
     Indication: RHEUMATOID ARTHRITIS
     Dosage: 5 MG, WEEKLY (QW)
     Route: 048
     Dates: start: 20121107
  4. CERTOLIZUMAB PEGOL RA [Suspect]
     Active Substance: CERTOLIZUMAB PEGOL
     Indication: RHEUMATOID ARTHRITIS
     Dosage: FIRST 3 DOSES WERE 400MG EVERY 2 WEEKS FOR LOADING DOSES
     Route: 058
     Dates: start: 20121106, end: 20131024
  5. METHOTREXATE [Concomitant]
     Active Substance: METHOTREXATE
     Indication: RHEUMATOID ARTHRITIS
     Dosage: 20 MG, WEEKLY (QW)
     Route: 048
     Dates: start: 20121204
  6. AMOXYCLAV [Concomitant]
     Dosage: 875 MG, 3X/DAY (TID)
     Route: 048
     Dates: start: 20131022, end: 20131029

REACTIONS (1)
  - Erysipelas [Recovered/Resolved]

NARRATIVE: CASE EVENT DATE: 20131024
